FAERS Safety Report 14190793 (Version 1)
Quarter: 2017Q4

REPORT INFORMATION
  Report Type: Spontaneous
  Country: US (occurrence: None)
  Receive Date: 20171114
  Receipt Date: 20171114
  Transmission Date: 20180321
  Serious: Yes (Hospitalization)
  Sender: FDA-Public Use
  Company Number: None

PATIENT
  Age: 53 Year
  Sex: Male

DRUGS (13)
  1. OXYCODONE AND ACETAMINOPHEN [Concomitant]
     Active Substance: ACETAMINOPHEN\OXYCODONE HYDROCHLORIDE
  2. LOSARTAN POT [Concomitant]
     Active Substance: LOSARTAN POTASSIUM
  3. ENBREL [Suspect]
     Active Substance: ETANERCEPT
     Indication: RHEUMATOID ARTHRITIS
     Route: 058
     Dates: start: 20170929
  4. GABAPENTIN. [Concomitant]
     Active Substance: GABAPENTIN
  5. INVOKANA [Concomitant]
     Active Substance: CANAGLIFLOZIN
  6. CHANTIX [Concomitant]
     Active Substance: VARENICLINE TARTRATE
  7. GLIPIZIDE ER [Concomitant]
     Active Substance: GLIPIZIDE
  8. SENEXON-S [Concomitant]
     Active Substance: DOCUSATE SODIUM\SENNOSIDES A AND B
  9. JANUMET [Concomitant]
     Active Substance: METFORMIN HYDROCHLORIDE\SITAGLIPTIN PHOSPHATE
  10. FOLIC ACID. [Concomitant]
     Active Substance: FOLIC ACID
  11. DIAZEPAM. [Concomitant]
     Active Substance: DIAZEPAM
  12. VALIUM [Concomitant]
     Active Substance: DIAZEPAM
  13. SOLIQUA 100/33 [Concomitant]
     Active Substance: INSULIN GLARGINE\LIXISENATIDE

REACTIONS (2)
  - Surgery [None]
  - Drug dose omission [None]
